FAERS Safety Report 17577793 (Version 1)
Quarter: 2020Q1

REPORT INFORMATION
  Report Type: Spontaneous
  Country: DE (occurrence: DE)
  Receive Date: 20200324
  Receipt Date: 20200324
  Transmission Date: 20200409
  Serious: Yes (Other)
  Sender: FDA-Public Use
  Company Number: DE-MYLANLABS-2020M1029749

PATIENT
  Age: 62 Year
  Sex: Female
  Weight: 62 kg

DRUGS (4)
  1. L-THYROXIN HENNING [Concomitant]
     Active Substance: LEVOTHYROXINE SODIUM
     Indication: PRODUCT USED FOR UNKNOWN INDICATION
     Dosage: 1 / THE CONTINUOUS
     Route: 048
  2. CANDESARTANCILEXETIL MYLAN 32 MG TABLETTEN [Suspect]
     Active Substance: CANDESARTAN CILEXETIL
     Indication: HYPERTENSION
     Dosage: 1/2 PAR DAY
     Route: 048
     Dates: start: 20191128, end: 20191228
  3. VOLTAREN [Concomitant]
     Active Substance: DICLOFENAC SODIUM
     Dosage: 1 DOSAGE FORM, PRN
     Route: 048
  4. NEBIVOLOL GLENMARK [Concomitant]
     Dosage: CONTINUOUS
     Route: 048

REACTIONS (6)
  - Headache [Recovered/Resolved]
  - Cough [Recovered/Resolved]
  - Product substitution issue [Unknown]
  - Visual impairment [Recovered/Resolved]
  - Pruritus [Recovered/Resolved]
  - Blood pressure increased [Recovered/Resolved]

NARRATIVE: CASE EVENT DATE: 20191128
